FAERS Safety Report 10480594 (Version 1)
Quarter: 2014Q3

REPORT INFORMATION
  Report Type: Spontaneous
  Country: US (occurrence: None)
  Receive Date: 20140925
  Receipt Date: 20140925
  Transmission Date: 20150326
  Serious: Yes (Hospitalization)
  Sender: FDA-Public Use
  Company Number: US-RRD-14-00106

PATIENT
  Age: 47 Year
  Sex: Female
  Weight: 81.64 kg

DRUGS (5)
  1. PANHEMATIN [Suspect]
     Active Substance: HEMIN
     Indication: PORPHYRIA ACUTE
     Dosage: 1 IN 1 D AIP SUBSIDED/BEFORE CHEMO)?
     Route: 042
     Dates: start: 2004
  2. PANHEMATIN [Suspect]
     Active Substance: HEMIN
     Indication: PROPHYLAXIS
     Dosage: 1 IN 1 D AIP SUBSIDED/BEFORE CHEMO)?
     Route: 042
     Dates: start: 2004
  3. BEENADRYL (DIPHENHYDRAMINE HYDROCHLORIDE) (DIPHENHYDRAMINE HYDROCHLORIDE) [Concomitant]
  4. TAXOL [Concomitant]
     Active Substance: PACLITAXEL
  5. CARBOPLATIN. [Concomitant]
     Active Substance: CARBOPLATIN

REACTIONS (16)
  - Confusional state [None]
  - Thrombosis [None]
  - Disease progression [None]
  - Overdose [None]
  - Drug dose omission [None]
  - Poor quality sleep [None]
  - Red blood cell count abnormal [None]
  - Malaise [None]
  - Porphyria [None]
  - Abdominal pain [None]
  - Dysstasia [None]
  - Drug administration error [None]
  - Liver disorder [None]
  - Hypophagia [None]
  - Asthenia [None]
  - White blood cell count abnormal [None]
